FAERS Safety Report 8673851 (Version 3)
Quarter: 2013Q1

REPORT INFORMATION
  Report Type: Report from Study
  Country: JP (occurrence: JP)
  Receive Date: 20120719
  Receipt Date: 20130130
  Transmission Date: 20140127
  Serious: Yes (Other)
  Sender: FDA-Public Use
  Company Number: JP-VERTEX PHARMACEUTICAL INC.-AE-2012-010248

PATIENT
  Age: 71 Year
  Sex: Female

DRUGS (10)
  1. VX-950 (TELAPREVIR) [Suspect]
     Indication: CHRONIC HEPATITIS C
     Dosage: 1500 MG, QD
     Route: 048
     Dates: start: 20120508, end: 20120730
  2. REBETOL [Suspect]
     Indication: CHRONIC HEPATITIS C
     Dosage: 600 MG, QD
     Route: 048
     Dates: start: 20120508, end: 20120618
  3. REBETOL [Suspect]
     Dosage: 400 MG, QD
     Route: 048
     Dates: start: 20120619, end: 20120716
  4. REBETOL [Suspect]
     Dosage: 200 MG, QD
     Dates: start: 20120717, end: 20120903
  5. REBETOL [Suspect]
     Dosage: 400 MG, QD
     Dates: start: 20120904, end: 20120924
  6. REBETOL [Suspect]
     Dosage: 400 MG, QD
  7. REBETOL [Suspect]
     Dosage: 600 MG, QOD
     Route: 048
     Dates: start: 20120925, end: 20121022
  8. PEGINTERFERON ALFA-2B [Suspect]
     Indication: CHRONIC HEPATITIS C
     Dosage: 1.5 ?G/KG, QW
     Route: 058
     Dates: start: 20120508, end: 20120528
  9. PEGINTERFERON ALFA-2B [Suspect]
     Dosage: 1.3 ?G/KG, QW
     Route: 058
     Dates: start: 20120529, end: 20121022
  10. PENTASA [Concomitant]
     Dosage: 1500 MG, QD
     Route: 048

REACTIONS (5)
  - Renal impairment [Recovered/Resolved]
  - Rash [Recovered/Resolved]
  - Anaemia [Recovered/Resolved]
  - Hyperuricaemia [Recovered/Resolved]
  - White blood cell count decreased [None]
